FAERS Safety Report 9648462 (Version 1)
Quarter: 2013Q4

REPORT INFORMATION
  Report Type: Spontaneous
  Country: US (occurrence: None)
  Receive Date: 20131025
  Receipt Date: 20131025
  Transmission Date: 20140711
  Serious: Yes (Life-Threatening, Hospitalization)
  Sender: FDA-Public Use
  Company Number: None

PATIENT
  Age: 46 Year
  Sex: Female
  Weight: 61.24 kg

DRUGS (2)
  1. ZOFRAN 4 MG GLAXCO SMITH KLINE [Suspect]
     Indication: NAUSEA
     Dates: start: 20130906, end: 20130906
  2. ZOFRAN 4 MG GLAXCO SMITH KLINE [Suspect]
     Indication: VOMITING
     Dates: start: 20130906, end: 20130906

REACTIONS (4)
  - Tremor [None]
  - Ventricular tachycardia [None]
  - Torsade de pointes [None]
  - Contraindication to medical treatment [None]
